FAERS Safety Report 20043062 (Version 6)
Quarter: 2022Q3

REPORT INFORMATION
  Report Type: Spontaneous
  Country: US (occurrence: US)
  Receive Date: 20211108
  Receipt Date: 20220819
  Transmission Date: 20221026
  Serious: Yes (Other)
  Sender: FDA-Public Use
  Company Number: US-ORGANON-O2110USA002723

PATIENT
  Sex: Female
  Weight: 75.556 kg

DRUGS (1)
  1. NEXPLANON [Suspect]
     Active Substance: ETONOGESTREL
     Indication: Contraception
     Dosage: 1 IMPLANT ROD, LEFT UPPER ARM, EVERY 3 YEARS
     Dates: start: 20181030

REACTIONS (7)
  - Device dislocation [Not Recovered/Not Resolved]
  - Heavy menstrual bleeding [Unknown]
  - Weight increased [Unknown]
  - Device issue [Not Recovered/Not Resolved]
  - Complication associated with device [Recovered/Resolved]
  - Complication of device removal [Not Recovered/Not Resolved]
  - Incorrect product administration duration [Unknown]

NARRATIVE: CASE EVENT DATE: 20190101
